FAERS Safety Report 5006534-3 (Version None)
Quarter: 2006Q2

REPORT INFORMATION
  Report Type: 
  Country: None (occurrence: None)
  Receive Date: 20060519
  Receipt Date: 20060120
  Transmission Date: 20061013
  Serious: Yes (Other)
  Sender: FDA-Public Use
  Company Number: GB-SANOFI-SYNTHELABO-A01200600602

PATIENT
  Age: 39 Year
  Sex: Male

DRUGS (4)
  1. ELOXATIN [Suspect]
     Indication: COLORECTAL CANCER
     Route: 042
     Dates: start: 20060119, end: 20060119
  2. DEXAMETHASONE [Concomitant]
     Dosage: UNK
     Route: 065
  3. ONDANSETRON HCL [Concomitant]
     Dosage: UNK
     Route: 065
  4. LANSOPRAZOLE [Concomitant]
     Dosage: UNK
     Route: 065

REACTIONS (4)
  - LARYNGOSPASM [None]
  - PAIN IN JAW [None]
  - THROAT TIGHTNESS [None]
  - VISION BLURRED [None]
